FAERS Safety Report 12934111 (Version 1)
Quarter: 2016Q4

REPORT INFORMATION
  Report Type: Spontaneous
  Country: FR (occurrence: FR)
  Receive Date: 20161111
  Receipt Date: 20161111
  Transmission Date: 20170207
  Serious: Yes (Death, Other)
  Sender: FDA-Public Use
  Company Number: FR-BRISTOL-MYERS SQUIBB COMPANY-BMS-2016-092004

PATIENT
  Age: 76 Year
  Sex: Male

DRUGS (2)
  1. KARDEGIC [Suspect]
     Active Substance: ASPIRIN LYSINE
     Indication: PRODUCT USED FOR UNKNOWN INDICATION
     Dosage: UNK MG, UNK
     Route: 065
  2. COUMADINE [Suspect]
     Active Substance: WARFARIN SODIUM
     Indication: ATRIAL FIBRILLATION
     Dosage: 2 MG, QD
     Route: 048
     Dates: end: 20150522

REACTIONS (5)
  - Haemoptysis [Fatal]
  - Anaemia [Recovering/Resolving]
  - Pulmonary haemorrhage [Fatal]
  - Respiratory distress [Fatal]
  - Melaena [Unknown]

NARRATIVE: CASE EVENT DATE: 20150519
